FAERS Safety Report 18818411 (Version 1)
Quarter: 2021Q1

REPORT INFORMATION
  Report Type: Spontaneous
  Country: AT (occurrence: AT)
  Receive Date: 20210201
  Receipt Date: 20210201
  Transmission Date: 20210419
  Serious: Yes (Other)
  Sender: FDA-Public Use
  Company Number: AT-SA-2021SA024306

PATIENT
  Age: 52 Year
  Sex: Female

DRUGS (5)
  1. PLAVIX [Suspect]
     Active Substance: CLOPIDOGREL BISULFATE
     Dosage: UNK, ACCORDING TO THE SPECIALIST INFORMATION
     Route: 048
     Dates: start: 20200618, end: 20200623
  2. VISIPAQUE [Concomitant]
     Active Substance: IODIXANOL
     Dosage: UNK, VISIPAQUE 270MG J / ML PAERNTERAL X?RAY CONTRAST
  3. DORMICUM [MIDAZOLAM] [Concomitant]
     Active Substance: MIDAZOLAM HYDROCHLORIDE
  4. HEPARIN [Concomitant]
     Active Substance: HEPARIN SODIUM
     Dosage: UNK, HEPARIN ^SANDOZ^ 5000IU / ML VIAL
  5. XYLANAEST PURUM [Concomitant]
     Dosage: UNK, 0.5% VIALS

REACTIONS (3)
  - Blister [Recovered/Resolved]
  - Type IV hypersensitivity reaction [Recovered/Resolved]
  - Pruritus [Recovered/Resolved]

NARRATIVE: CASE EVENT DATE: 20200620
